FAERS Safety Report 11211734 (Version 4)
Quarter: 2016Q4

REPORT INFORMATION
  Report Type: Spontaneous
  Country: MY (occurrence: MY)
  Receive Date: 20150623
  Receipt Date: 20161127
  Transmission Date: 20170206
  Serious: Yes (Other)
  Sender: FDA-Public Use
  Company Number: MY-HTU-2015MY011273

PATIENT
  Age: 28 Year
  Sex: Female

DRUGS (6)
  1. CEFUROXIME. [Concomitant]
     Active Substance: CEFUROXIME
     Dosage: 1.5 G, UNK
     Route: 042
  2. ALOXI [Suspect]
     Active Substance: PALONOSETRON HYDROCHLORIDE
     Indication: PROPHYLAXIS OF NAUSEA AND VOMITING
     Dosage: 0.075 MG, SINGLE
     Route: 042
     Dates: start: 20150603, end: 20150603
  3. SEVOFLURANE. [Concomitant]
     Active Substance: SEVOFLURANE
     Indication: ANAESTHESIA
  4. PROPOFOL. [Concomitant]
     Active Substance: PROPOFOL
     Indication: ANAESTHESIA
     Dosage: 100 MG, UNK
  5. FENTANYL. [Concomitant]
     Active Substance: FENTANYL
     Indication: ANAESTHESIA
     Dosage: 100 ?G, UNK
  6. PARECOXIB [Concomitant]
     Active Substance: PARECOXIB
     Dosage: 40 MG, UNK
     Route: 042

REACTIONS (4)
  - Respiratory rate decreased [Recovered/Resolved]
  - Myoclonus [Recovered/Resolved]
  - Blood pressure systolic decreased [Recovered/Resolved]
  - Heart rate decreased [Recovered/Resolved]

NARRATIVE: CASE EVENT DATE: 20150603
